FAERS Safety Report 23644331 (Version 1)
Quarter: 2024Q1

REPORT INFORMATION
  Report Type: Spontaneous
  Country: CA (occurrence: CA)
  Receive Date: 20240318
  Receipt Date: 20240318
  Transmission Date: 20240410
  Serious: Yes (Other)
  Sender: FDA-Public Use
  Company Number: CA-PFIZER INC-PV202400025335

PATIENT
  Age: 66 Year
  Sex: Female

DRUGS (6)
  1. OXALIPLATIN [Suspect]
     Active Substance: OXALIPLATIN
     Indication: Colon cancer metastatic
     Dosage: UNK
     Dates: start: 20220522, end: 20221213
  2. OXALIPLATIN [Suspect]
     Active Substance: OXALIPLATIN
     Indication: BRAF V600E mutation positive
     Dosage: UNK
     Dates: start: 20231120, end: 20240130
  3. BEVACIZUMAB [Suspect]
     Active Substance: BEVACIZUMAB
     Indication: Colon cancer metastatic
     Dosage: UNK
     Dates: start: 20220522, end: 20221213
  4. BEVACIZUMAB [Suspect]
     Active Substance: BEVACIZUMAB
     Indication: BRAF V600E mutation positive
     Dosage: UNK
     Dates: start: 20231120, end: 20240130
  5. CAPECITABINE [Suspect]
     Active Substance: CAPECITABINE
     Indication: Colon cancer metastatic
     Dosage: UNK
     Dates: start: 20220522, end: 20221213
  6. CAPECITABINE [Suspect]
     Active Substance: CAPECITABINE
     Indication: BRAF V600E mutation positive
     Dosage: UNK
     Dates: start: 20231120, end: 20240130

REACTIONS (2)
  - Abdominal abscess [Unknown]
  - Neoplasm progression [Unknown]

NARRATIVE: CASE EVENT DATE: 20220101
